FAERS Safety Report 19177444 (Version 1)
Quarter: 2021Q2

REPORT INFORMATION
  Report Type: Spontaneous
  Country: US (occurrence: US)
  Receive Date: 20210423
  Receipt Date: 20210423
  Transmission Date: 20210717
  Serious: Yes (Hospitalization)
  Sender: FDA-Public Use
  Company Number: None

PATIENT
  Age: 60 Year
  Sex: Male
  Weight: 108 kg

DRUGS (16)
  1. ATORVASTATIN [Concomitant]
     Active Substance: ATORVASTATIN
  2. LUTEIN 10MG [Concomitant]
  3. OXCARBAZEPINE 150MG [Concomitant]
  4. AMITRIPTYLINE [Concomitant]
     Active Substance: AMITRIPTYLINE
  5. HYGROTON [Concomitant]
     Active Substance: CHLORTHALIDONE
  6. METOPROLOL 100MG [Concomitant]
     Active Substance: METOPROLOL
  7. BACLOFEN 10MG [Concomitant]
     Active Substance: BACLOFEN
  8. FLUTICASONE 50MCG [Concomitant]
     Active Substance: FLUTICASONE
  9. CBD EXTRACT [Concomitant]
  10. MONTLUKAST 10MG [Concomitant]
  11. PANTOPRAZOLE 40MG [Concomitant]
     Active Substance: PANTOPRAZOLE SODIUM
  12. VITAMIN D3 [Concomitant]
     Active Substance: CHOLECALCIFEROL
  13. DESIPRAMINE 150MG [Concomitant]
  14. CASIRIVIMAB/IMDEVIMAB [Suspect]
     Active Substance: CASIRIVIMAB\IMDEVIMAB
     Indication: SARS-COV-2 TEST POSITIVE
     Dosage: ?          OTHER FREQUENCY:ONCE;?
     Route: 042
     Dates: start: 20210421, end: 20210421
  15. GABAPENTIN 600MG [Concomitant]
     Active Substance: GABAPENTIN
  16. NEUROPATHY SUPPORT FORMULA [Concomitant]

REACTIONS (1)
  - Hospitalisation [None]

NARRATIVE: CASE EVENT DATE: 20210423
